FAERS Safety Report 4728522-4 (Version None)
Quarter: 2005Q3

REPORT INFORMATION
  Report Type: 
  Country: None (occurrence: None)
  Receive Date: 20050729
  Receipt Date: 20050412
  Transmission Date: 20060218
  Serious: No
  Sender: FDA-Public Use
  Company Number: US-GLAXOSMITHKLINE-A0553775A

PATIENT
  Sex: Male

DRUGS (5)
  1. ZANTAC [Suspect]
     Dosage: 150MG VARIABLE DOSE
     Route: 048
     Dates: end: 20030601
  2. PEPCID [Suspect]
     Route: 048
     Dates: start: 20030101
  3. PRILOSEC [Suspect]
     Route: 048
  4. PROTONIX [Suspect]
     Dosage: 40MG PER DAY
     Route: 048
     Dates: start: 20030901
  5. NO CONCURRENT MEDICATION [Concomitant]

REACTIONS (4)
  - ANXIETY [None]
  - CLAUSTROPHOBIA [None]
  - PALPITATIONS [None]
  - TREMOR [None]
